FAERS Safety Report 25023388 (Version 2)
Quarter: 2025Q1

REPORT INFORMATION
  Report Type: Spontaneous
  Country: US (occurrence: US)
  Receive Date: 20250228
  Receipt Date: 20250228
  Transmission Date: 20250409
  Serious: No
  Sender: GALDERMA
  Company Number: US-GALDERMA-US2024018274

PATIENT

DRUGS (3)
  1. PROACTIV MD ADAPALENE ACNE TREATMENT [Suspect]
     Active Substance: ADAPALENE
     Indication: Acne
     Route: 061
     Dates: start: 202411, end: 202411
  2. Proactiv MD Ultra Gentle Cleanser [Concomitant]
     Indication: Acne
     Route: 061
     Dates: start: 202411, end: 202411
  3. COSMETICS [Concomitant]
     Active Substance: COSMETICS
     Indication: Acne
     Route: 061
     Dates: start: 202411, end: 202411

REACTIONS (5)
  - Swelling face [Recovered/Resolved]
  - Hypersensitivity [Recovered/Resolved]
  - Dry skin [Recovered/Resolved]
  - Skin exfoliation [Recovered/Resolved]
  - Erythema [Recovered/Resolved]

NARRATIVE: CASE EVENT DATE: 20241101
